FAERS Safety Report 14687237 (Version 1)
Quarter: 2018Q1

REPORT INFORMATION
  Report Type: Spontaneous
  Country: CN (occurrence: CN)
  Receive Date: 20180328
  Receipt Date: 20180328
  Transmission Date: 20180509
  Serious: Yes (Life-Threatening, Other)
  Sender: FDA-Public Use
  Company Number: CN-STRIDES ARCOLAB LIMITED-2018SP002249

PATIENT

DRUGS (13)
  1. METHYLPREDNISOLONE. [Concomitant]
     Active Substance: METHYLPREDNISOLONE
     Indication: SPLENIC LESION
     Dosage: 0.25 G, DAY
     Route: 042
  2. GANCICLOVIR. [Concomitant]
     Active Substance: GANCICLOVIR
     Indication: ENCEPHALOPATHY
     Dosage: UNK
     Route: 042
  3. GENTAMICIN. [Suspect]
     Active Substance: GENTAMICIN
     Indication: STAPHYLOCOCCAL INFECTION
     Dosage: UNK
     Route: 065
  4. FOSFOMYCIN [Suspect]
     Active Substance: FOSFOMYCIN
     Indication: STAPHYLOCOCCAL INFECTION
     Dosage: UNK
     Route: 065
  5. METHYLPREDNISOLONE. [Concomitant]
     Active Substance: METHYLPREDNISOLONE
     Indication: ENCEPHALOPATHY
     Dosage: 0.8 G, DAY
     Route: 042
  6. CEFTRIAXONE. [Concomitant]
     Active Substance: CEFTRIAXONE
     Indication: SPLENIC LESION
     Dosage: UNK
     Route: 042
  7. AMPICILLIN, SULBACTAM [Suspect]
     Active Substance: AMPICILLIN SODIUM\SULBACTAM SODIUM
     Indication: STAPHYLOCOCCAL INFECTION
     Dosage: UNK
     Route: 065
  8. VANCOMYCIN [Suspect]
     Active Substance: VANCOMYCIN
     Indication: STAPHYLOCOCCAL INFECTION
     Dosage: UNK
     Route: 065
  9. CEFTRIAXONE. [Concomitant]
     Active Substance: CEFTRIAXONE
     Indication: ENCEPHALOPATHY
  10. IMMUNOGLOBULIN IV [Concomitant]
     Active Substance: HUMAN IMMUNOGLOBULIN G
     Indication: ENCEPHALOPATHY
     Dosage: 0.4G/KG/DAY
     Route: 042
  11. LEVOFLOXACIN. [Suspect]
     Active Substance: LEVOFLOXACIN
     Indication: STAPHYLOCOCCAL INFECTION
     Dosage: UNK
     Route: 065
  12. GANCICLOVIR. [Concomitant]
     Active Substance: GANCICLOVIR
     Indication: SPLENIC LESION
  13. IMMUNOGLOBULIN IV [Concomitant]
     Active Substance: HUMAN IMMUNOGLOBULIN G
     Indication: SPLENIC LESION

REACTIONS (1)
  - Drug ineffective [Unknown]
